FAERS Safety Report 14340594 (Version 1)
Quarter: 2018Q1

REPORT INFORMATION
  Report Type: Spontaneous
  Country: JP (occurrence: JP)
  Receive Date: 20180101
  Receipt Date: 20180101
  Transmission Date: 20180509
  Serious: Yes (Other)
  Sender: FDA-Public Use
  Company Number: PHJP2017JP031061

PATIENT
  Age: 80 Year
  Sex: Male

DRUGS (1)
  1. LAMISIL [Suspect]
     Active Substance: TERBINAFINE HYDROCHLORIDE
     Indication: PRODUCT USED FOR UNKNOWN INDICATION
     Dosage: UNK
     Route: 048
     Dates: start: 201705, end: 20171010

REACTIONS (3)
  - Hepatic function abnormal [Recovered/Resolved]
  - Lung disorder [Unknown]
  - Atypical mycobacterial infection [Unknown]

NARRATIVE: CASE EVENT DATE: 20171010
